FAERS Safety Report 19964259 (Version 7)
Quarter: 2022Q1

REPORT INFORMATION
  Report Type: Spontaneous
  Country: JP (occurrence: JP)
  Receive Date: 20211018
  Receipt Date: 20220312
  Transmission Date: 20220423
  Serious: Yes (Hospitalization, Other)
  Sender: FDA-Public Use
  Company Number: JP-BRISTOL-MYERS SQUIBB COMPANY-BMS-2021-093724

PATIENT
  Age: 73 Year
  Sex: Female
  Weight: 41 kg

DRUGS (14)
  1. OPDIVO [Suspect]
     Active Substance: NIVOLUMAB
     Indication: Non-small cell lung cancer recurrent
     Dosage: 360 MILLIGRAM
     Route: 041
     Dates: start: 20210805, end: 20210826
  2. YERVOY [Suspect]
     Active Substance: IPILIMUMAB
     Indication: Non-small cell lung cancer recurrent
     Dosage: 42.2 MILLIGRAM
     Route: 041
     Dates: start: 20210805, end: 20210826
  3. PACLITAXEL [Suspect]
     Active Substance: PACLITAXEL
     Indication: Non-small cell lung cancer recurrent
     Dosage: 636.5 MILLIGRAM
     Route: 065
     Dates: start: 20210805, end: 20210826
  4. CARBOPLATIN [Suspect]
     Active Substance: CARBOPLATIN
     Indication: Non-small cell lung cancer recurrent
     Dosage: 425.5 MILLIGRAM
     Route: 065
     Dates: start: 20210805, end: 20210826
  5. PEMETREXED [Suspect]
     Active Substance: PEMETREXED
     Indication: Non-small cell lung cancer recurrent
     Dosage: 636.5 MILLIGRAM
     Route: 065
     Dates: start: 20210805, end: 20210826
  6. MIYA-BM [Concomitant]
     Active Substance: CLOSTRIDIUM BUTYRICUM SPORES STRAIN M-55
     Indication: Gastrointestinal disorder prophylaxis
     Dosage: 2 DOSAGE FORM, TID
     Route: 048
     Dates: start: 20210805
  7. PANVITAN [ASCORBIC ACID;CALCIUM PANTOTHENATE;CYANOCOBALAMIN;ERGOCALCIF [Concomitant]
     Indication: Prophylaxis
     Dosage: 1 GRAM, QD
     Route: 048
     Dates: start: 20210729, end: 20211001
  8. FRESMIN S [HYDROXOCOBALAMIN ACETATE] [Concomitant]
     Indication: Prophylaxis
     Dosage: 1 MILLIGRAM/9WEEKS ONCE
     Route: 030
     Dates: start: 20210729, end: 20210729
  9. MAGNESIUM OXIDE [Concomitant]
     Active Substance: MAGNESIUM OXIDE
     Indication: Constipation
     Dosage: UNK, TID
     Route: 048
     Dates: start: 20210809
  10. CARBOCYSTEINE [Concomitant]
     Active Substance: CARBOCYSTEINE
     Indication: Productive cough
     Dosage: 2 TABLET/DAY, BID
     Route: 048
     Dates: start: 20210804
  11. PROCATEROL HYDROCHLORIDE [Concomitant]
     Active Substance: PROCATEROL HYDROCHLORIDE
     Indication: Antitussive therapy
     Dosage: 2TABLET/DAY, BID
     Route: 048
     Dates: start: 20210804
  12. DENOSUMAB [Concomitant]
     Active Substance: DENOSUMAB
     Indication: Product used for unknown indication
     Dosage: UNK
     Route: 065
     Dates: start: 20210806
  13. PROCATEROL HYDROCHLORIDE [Concomitant]
     Active Substance: PROCATEROL HYDROCHLORIDE
     Indication: Cough
     Dosage: 25 MICROGRAM, Q12H
     Route: 048
     Dates: start: 20210804
  14. CALONAL [Concomitant]
     Active Substance: ACETAMINOPHEN
     Indication: Analgesic therapy
     Dosage: 3 DOSAGE FORM, Q8H
     Route: 065
     Dates: start: 20210829

REACTIONS (10)
  - Immune-mediated myocarditis [Recovered/Resolved]
  - Immune-mediated hepatic disorder [Recovered/Resolved]
  - Hyperchlorhydria [Unknown]
  - Constipation [Unknown]
  - Drug eruption [Unknown]
  - Hypocalcaemia [Unknown]
  - Nausea [Unknown]
  - Taste disorder [Unknown]
  - Pyrexia [Unknown]
  - Cancer pain [Unknown]

NARRATIVE: CASE EVENT DATE: 20210805
